FAERS Safety Report 12938854 (Version 1)
Quarter: 2016Q4

REPORT INFORMATION
  Report Type: Spontaneous
  Country: US (occurrence: US)
  Receive Date: 20161114
  Receipt Date: 20161114
  Transmission Date: 20170207
  Serious: Yes (Hospitalization)
  Sender: FDA-Public Use
  Company Number: None

PATIENT
  Age: 63 Year
  Sex: Female

DRUGS (5)
  1. IBRANCE [Suspect]
     Active Substance: PALBOCICLIB
     Indication: BREAST CANCER
     Dosage: 125 MG QD1-21, 28 DAY CYCLE ORAL
     Route: 048
     Dates: start: 20161023
  2. ESTRACE [Concomitant]
     Active Substance: ESTRADIOL
  3. LETROZOLE. [Concomitant]
     Active Substance: LETROZOLE
  4. NITROFUR MAC CAP [Concomitant]
  5. LUMIGAN SOL [Concomitant]

REACTIONS (1)
  - Systemic infection [None]

NARRATIVE: CASE EVENT DATE: 201611
